FAERS Safety Report 25321707 (Version 1)
Quarter: 2025Q2

REPORT INFORMATION
  Report Type: Spontaneous
  Country: US (occurrence: US)
  Receive Date: 20250516
  Receipt Date: 20250516
  Transmission Date: 20250717
  Serious: No
  Sender: MACLEODS
  Company Number: US-MACLEODS PHARMA-MAC2025052943

PATIENT

DRUGS (2)
  1. OLANZAPINE [Suspect]
     Active Substance: OLANZAPINE
     Indication: Hallucination
     Dosage: 2.5 MG PER DAY
     Route: 065
     Dates: start: 202503
  2. OLANZAPINE [Suspect]
     Active Substance: OLANZAPINE
     Dosage: NDC: 33342-067-07
     Route: 065
     Dates: start: 20250414, end: 20250414

REACTIONS (1)
  - Headache [Unknown]

NARRATIVE: CASE EVENT DATE: 20250407
